FAERS Safety Report 16273385 (Version 2)
Quarter: 2019Q4

REPORT INFORMATION
  Report Type: Report from Study
  Country: CA (occurrence: CA)
  Receive Date: 20190506
  Receipt Date: 20191003
  Transmission Date: 20200122
  Serious: Yes (Hospitalization, Other)
  Sender: FDA-Public Use
  Company Number: CA-TEVA-2019-CA-1046306

PATIENT
  Age: 68 Year
  Sex: Female

DRUGS (6)
  1. BISOPROLOL [Suspect]
     Active Substance: BISOPROLOL
     Indication: PRODUCT USED FOR UNKNOWN INDICATION
     Route: 065
  2. SANDOSTATIN [Suspect]
     Active Substance: OCTREOTIDE ACETATE
     Indication: NEUROENDOCRINE TUMOUR
     Dosage: 450 MICROGRAM DAILY;
     Route: 058
  3. XARELTO [Concomitant]
     Active Substance: RIVAROXABAN
     Indication: PRODUCT USED FOR UNKNOWN INDICATION
     Route: 065
  4. SANDOSTATIN [Suspect]
     Active Substance: OCTREOTIDE ACETATE
     Route: 058
  5. SANDOSTATIN [Suspect]
     Active Substance: OCTREOTIDE ACETATE
     Route: 030
  6. SANDOSTATIN [Suspect]
     Active Substance: OCTREOTIDE ACETATE
     Route: 030

REACTIONS (14)
  - Blood pressure decreased [Unknown]
  - Blood pressure increased [Unknown]
  - Injection site pain [Unknown]
  - Vomiting [Unknown]
  - Dysstasia [Unknown]
  - Fall [Unknown]
  - Abdominal pain [Unknown]
  - Faeces discoloured [Unknown]
  - Headache [Unknown]
  - Body temperature decreased [Unknown]
  - Upper limb fracture [Unknown]
  - Injection site swelling [Unknown]
  - Pain [Unknown]
  - Dizziness [Unknown]
